FAERS Safety Report 9098201 (Version 1)
Quarter: 2013Q1

REPORT INFORMATION
  Report Type: Spontaneous
  Country: CA (occurrence: CA)
  Receive Date: 20130213
  Receipt Date: 20130213
  Transmission Date: 20140127
  Serious: Yes (Other)
  Sender: FDA-Public Use
  Company Number: PHHY2013CA012836

PATIENT
  Sex: 0

DRUGS (15)
  1. GLEEVEC [Suspect]
     Dosage: 400 MG, ONCE EVERY DAY
     Route: 048
  2. CYTARABINE [Suspect]
     Dosage: UNK UKN, CYCLICAL
     Route: 037
  3. METHOTREXATE [Suspect]
     Dosage: 4000 MG/M2, CYCLICAL
     Route: 042
  4. METHOTREXATE [Suspect]
     Dosage: UNK UKN, CYCLICAL
     Route: 037
  5. DOXORUBICIN [Suspect]
     Dosage: 30 MG/M2, UNK
     Route: 042
  6. HYDROCORTISONE [Suspect]
     Dosage: UNK UKN, CYCLICAL
     Route: 037
  7. ASPARAGINASE [Suspect]
     Dosage: UNK UKN, CYCLICAL
     Route: 030
  8. LEUCOVORIN [Suspect]
     Dosage: UNK UKN, CYCLICAL
  9. PREDNISONE [Suspect]
     Dosage: 10 MG, 4 EVERY 1 DAY
     Route: 048
  10. VINCRISTINE SULFATE [Suspect]
     Dosage: 2 MG, CYCLICAL
     Route: 042
  11. BISPHOSPHONATES [Concomitant]
     Dosage: UNK UKN, UNK
  12. AP CALCIUM+VIT D [Concomitant]
     Dosage: UNK UKN, UNK
  13. FLUCONAZOLE [Concomitant]
     Dosage: UNK UKN, UNK
  14. PENTAMIDINE ISETHIONATE [Concomitant]
     Dosage: UNK UKN, UNK
  15. TRIMETHOPRIM SULFAMETHOXAZOLE [Concomitant]
     Dosage: UNK UKN, UNK

REACTIONS (1)
  - Asthenia [Unknown]
